FAERS Safety Report 9818014 (Version 2)
Quarter: 2013Q4

REPORT INFORMATION
  Report Type: Spontaneous
  Country: US (occurrence: None)
  Receive Date: 20131223
  Receipt Date: 20131223
  Transmission Date: 20140711
  Serious: Yes (Other)
  Sender: FDA-Public Use
  Company Number: 220326

PATIENT
  Age: 52 Year
  Sex: Female

DRUGS (1)
  1. PICATO GEL [Suspect]
     Indication: ACTINIC KERATOSIS
     Route: 061
     Dates: start: 20130124, end: 20130126

REACTIONS (6)
  - Application site pain [None]
  - Drug administered at inappropriate site [None]
  - Off label use [None]
  - Application site swelling [None]
  - Headache [None]
  - Application site vesicles [None]
